FAERS Safety Report 10692945 (Version 3)
Quarter: 2015Q1

REPORT INFORMATION
  Report Type: Spontaneous
  Country: AU (occurrence: AU)
  Receive Date: 20150106
  Receipt Date: 20150223
  Transmission Date: 20150720
  Serious: Yes (Life-Threatening, Hospitalization)
  Sender: FDA-Public Use
  Company Number: AU-SA-2014SA168911

PATIENT
  Age: 76 Year
  Sex: Female
  Weight: 77 kg

DRUGS (4)
  1. HUMALOG [Suspect]
     Active Substance: INSULIN LISPRO
     Route: 065
  2. LANTUS [Suspect]
     Active Substance: INSULIN GLARGINE
     Dosage: DOSE:48 UNIT(S)
     Route: 065
     Dates: start: 2014
  3. LANTUS [Suspect]
     Active Substance: INSULIN GLARGINE
     Dosage: DOSE:48 UNIT(S)
     Route: 058
     Dates: start: 20141010
  4. HUMALOG [Suspect]
     Active Substance: INSULIN LISPRO
     Route: 065

REACTIONS (3)
  - Pulmonary oedema [Recovering/Resolving]
  - Oedema peripheral [Recovering/Resolving]
  - Drug administration error [Unknown]

NARRATIVE: CASE EVENT DATE: 201410
